FAERS Safety Report 15035519 (Version 1)
Quarter: 2018Q3

REPORT INFORMATION
  Report Type: Spontaneous
  Country: US (occurrence: US)
  Receive Date: 20180620
  Receipt Date: 20180620
  Transmission Date: 20181010
  Serious: No
  Sender: FDA-Public Use
  Company Number: US-TEVA-2018-US-907739

PATIENT
  Age: 74 Year
  Sex: Female

DRUGS (1)
  1. BETAMETH DIPROPT CR (BETAMETHASONE\CLOTRIMAZOLE) [Suspect]
     Active Substance: BETAMETHASONE\CLOTRIMAZOLE
     Indication: DERMATOSIS
     Route: 065
     Dates: start: 2017

REACTIONS (3)
  - Accidental exposure to product [Unknown]
  - Eye pruritus [Unknown]
  - Lacrimation increased [Unknown]

NARRATIVE: CASE EVENT DATE: 201804
